FAERS Safety Report 8573987 (Version 9)
Quarter: 2015Q1

REPORT INFORMATION
  Report Type: Spontaneous
  Country: US (occurrence: US)
  Receive Date: 20120522
  Receipt Date: 20150216
  Transmission Date: 20150721
  Serious: Yes (Hospitalization, Disabling, Other)
  Sender: FDA-Public Use
  Company Number: US-009507513-1205USA02850

PATIENT
  Sex: Female
  Weight: 78.5 kg

DRUGS (4)
  1. FOSAMAX [Suspect]
     Active Substance: ALENDRONATE SODIUM
     Dosage: 70 MG, QW
     Route: 048
     Dates: start: 20040120, end: 2008
  2. ALENDRONATE SODIUM. [Suspect]
     Active Substance: ALENDRONATE SODIUM
     Indication: OSTEOPOROSIS
     Dosage: 70 MG, UNK
     Route: 048
     Dates: start: 2008, end: 20100824
  3. FOSAMAX [Suspect]
     Active Substance: ALENDRONATE SODIUM
     Dosage: UNK
     Route: 048
     Dates: start: 1998, end: 20100909
  4. FOSAMAX [Suspect]
     Active Substance: ALENDRONATE SODIUM
     Indication: OSTEOPOROSIS
     Dosage: 10 MG, QD
     Route: 048
     Dates: start: 19990309, end: 200401

REACTIONS (39)
  - Squamous cell carcinoma of skin [Unknown]
  - Helicobacter infection [Unknown]
  - Cardiac murmur [Unknown]
  - Dizziness [Unknown]
  - Osteopenia [Unknown]
  - Rectocele [Unknown]
  - Large intestine polyp [Unknown]
  - Chronic kidney disease [Not Recovered/Not Resolved]
  - Femur fracture [Unknown]
  - Diverticulum [Unknown]
  - Cystocele [Unknown]
  - Hypertensive nephropathy [Unknown]
  - Oesophagitis [Unknown]
  - Internal fixation of fracture [Recovering/Resolving]
  - Tooth disorder [Unknown]
  - Colitis [Unknown]
  - Hypertension [Unknown]
  - Varicose vein [Unknown]
  - Hyperlipidaemia [Unknown]
  - Actinic keratosis [Unknown]
  - Osteoarthritis [Unknown]
  - Osteoporosis [Unknown]
  - Aortic arteriosclerosis [Unknown]
  - Vaginal prolapse [Unknown]
  - Dermatitis [Unknown]
  - Diarrhoea [Unknown]
  - Low turnover osteopathy [Unknown]
  - Osteopenia [Unknown]
  - Hiatus hernia [Unknown]
  - Fracture [Unknown]
  - Cough [Recovered/Resolved]
  - Nausea [Unknown]
  - Stress fracture [Unknown]
  - Fall [Unknown]
  - Blood cholesterol increased [Unknown]
  - Urinary incontinence [Unknown]
  - Pulmonary mass [Unknown]
  - Cough [Recovered/Resolved]
  - Gastrooesophageal reflux disease [Unknown]

NARRATIVE: CASE EVENT DATE: 20030304
